FAERS Safety Report 8893916 (Version 1)
Quarter: 2012Q4

REPORT INFORMATION
  Report Type: 
  Country: US (occurrence: US)
  Receive Date: 20121107
  Receipt Date: 20121107
  Transmission Date: 20130627
  Serious: No
  Sender: FDA-Public Use
  Company Number: US-AMGEN-USASP2011060146

PATIENT
  Age: 48 Year
  Sex: Female

DRUGS (10)
  1. ENBREL [Suspect]
     Indication: PRODUCT USED FOR UNKNOWN INDICATION
     Dosage: 50 mg, qwk
     Route: 058
  2. METFORMIN [Concomitant]
     Dosage: 500 mg, UNK
  3. PREDNISONE [Concomitant]
     Dosage: 1 mg, UNK
  4. VITAMIN B12                        /00056201/ [Concomitant]
  5. VITAMIN D /00107901/ [Concomitant]
  6. FISH OIL [Concomitant]
  7. IRON [Concomitant]
     Dosage: 18 mg, UNK
  8. METHOTREXATE [Concomitant]
     Dosage: 2.5 mg, UNK
  9. LEVEMIR [Concomitant]
  10. NOVOLOG [Concomitant]

REACTIONS (2)
  - Asthenia [Unknown]
  - Dyspnoea [Unknown]
